FAERS Safety Report 9880824 (Version 1)
Quarter: 2014Q1

REPORT INFORMATION
  Report Type: Spontaneous
  Country: ZA (occurrence: None)
  Receive Date: 20140205
  Receipt Date: 20140205
  Transmission Date: 20141002
  Serious: Yes (Other)
  Sender: FDA-Public Use
  Company Number: B0965747A

PATIENT
  Age: 40 Year
  Sex: Male

DRUGS (3)
  1. LAMIVUDINE-HIV [Suspect]
     Indication: HIV INFECTION
  2. EFAVIRENZ (EFAVIRENZ) [Suspect]
     Indication: HIV INFECTION
  3. TENOFOVIR [Suspect]
     Indication: HIV INFECTION

REACTIONS (3)
  - Ulcerative keratitis [None]
  - Conjunctivitis [None]
  - Immune reconstitution inflammatory syndrome [None]
